FAERS Safety Report 8178024-0 (Version None)
Quarter: 2012Q1

REPORT INFORMATION
  Report Type: 
  Country: None (occurrence: None)
  Receive Date: 20120301
  Receipt Date: 20120227
  Transmission Date: 20120608
  Serious: No
  Sender: FDA-Public Use
  Company Number: US-PFIZER INC-2012013440

PATIENT
  Sex: Female
  Weight: 84.8 kg

DRUGS (3)
  1. EXEMESTANE [Suspect]
     Indication: PROPHYLACTIC CHEMOTHERAPY
     Dosage: 25 MG, 1X/DAY
     Route: 048
     Dates: start: 20111107
  2. ACETYLSALICYLIC ACID [Concomitant]
     Dosage: UNK
  3. ASPIRIN [Concomitant]
     Indication: PROPHYLAXIS
     Dosage: UNK

REACTIONS (2)
  - WEIGHT LOSS POOR [None]
  - WEIGHT INCREASED [None]
